FAERS Safety Report 23687098 (Version 1)
Quarter: 2024Q1

REPORT INFORMATION
  Report Type: Spontaneous
  Country: US (occurrence: None)
  Receive Date: 20240328
  Receipt Date: 20240328
  Transmission Date: 20240410
  Serious: Yes (Other)
  Sender: FDA-Public Use
  Company Number: None

PATIENT
  Sex: Female

DRUGS (1)
  1. ZARXIO [Suspect]
     Active Substance: FILGRASTIM-SNDZ
     Dosage: OTHER QUANTITY : MCG PER ML;?FREQUENCY : AS DIRECTED;?
     Route: 058
     Dates: start: 202402

REACTIONS (1)
  - Adverse drug reaction [None]
